FAERS Safety Report 17316241 (Version 1)
Quarter: 2020Q1

REPORT INFORMATION
  Report Type: Spontaneous
  Country: US (occurrence: US)
  Receive Date: 20200124
  Receipt Date: 20200124
  Transmission Date: 20200409
  Serious: Yes (Other)
  Sender: FDA-Public Use
  Company Number: US-ASTRAZENECA-2020SE09884

PATIENT
  Sex: Male

DRUGS (5)
  1. MOVANTIK [Suspect]
     Active Substance: NALOXEGOL OXALATE
     Indication: CONSTIPATION
     Route: 048
  2. FERROUS SULFATE. [Concomitant]
     Active Substance: FERROUS SULFATE
     Route: 065
  3. MOVANTIK [Suspect]
     Active Substance: NALOXEGOL OXALATE
     Indication: CONSTIPATION
     Route: 048
  4. MOVANTIK [Suspect]
     Active Substance: NALOXEGOL OXALATE
     Indication: RENAL IMPAIRMENT
     Route: 048
  5. MOVANTIK [Suspect]
     Active Substance: NALOXEGOL OXALATE
     Indication: RENAL IMPAIRMENT
     Route: 048

REACTIONS (5)
  - Faeces discoloured [Unknown]
  - Gastric haemorrhage [Unknown]
  - Wrong technique in product usage process [Unknown]
  - Creatinine renal clearance decreased [Unknown]
  - Constipation [Unknown]
